FAERS Safety Report 16543701 (Version 1)
Quarter: 2019Q3

REPORT INFORMATION
  Report Type: Spontaneous
  Country: US (occurrence: US)
  Receive Date: 20190527
  Receipt Date: 20190527
  Transmission Date: 20191004
  Serious: No
  Sender: FDA-Public Use
  Company Number: None

PATIENT
  Age: 53 Year
  Sex: Female

DRUGS (1)
  1. ENVARSUS XR [Suspect]
     Active Substance: TACROLIMUS
     Dates: start: 20190101

REACTIONS (5)
  - Muscle tightness [None]
  - Insomnia [None]
  - Renal transplant [None]
  - Swelling [None]
  - Constipation [None]

NARRATIVE: CASE EVENT DATE: 20190527
